FAERS Safety Report 20216825 (Version 1)
Quarter: 2021Q4

REPORT INFORMATION
  Report Type: Spontaneous
  Country: CA (occurrence: CA)
  Receive Date: 20211222
  Receipt Date: 20211222
  Transmission Date: 20220304
  Serious: Yes (Other)
  Sender: FDA-Public Use
  Company Number: CA-TEVA-2021-CA-1989302

PATIENT
  Age: 74 Year
  Sex: Male
  Weight: 56 kg

DRUGS (15)
  1. FLUCONAZOLE [Interacting]
     Active Substance: FLUCONAZOLE
     Dosage: 200 MILLIGRAM DAILY;
     Route: 048
  2. PANTOPRAZOLE [Concomitant]
     Active Substance: PANTOPRAZOLE
  3. ASPIRIN [Concomitant]
     Active Substance: ASPIRIN
  4. BISMUTH [Concomitant]
     Active Substance: BISMUTH
  5. BISOPROLOL [Concomitant]
     Active Substance: BISOPROLOL
  6. FERROUS SULFATE [Concomitant]
     Active Substance: FERROUS SULFATE
  7. JANUVIA [Concomitant]
     Active Substance: SITAGLIPTIN PHOSPHATE
  8. POLYETHYLENE GLYCOL 3350 [Concomitant]
     Active Substance: POLYETHYLENE GLYCOL 3350
  9. METFORMIN [Concomitant]
     Active Substance: METFORMIN HYDROCHLORIDE
  10. METRONIDAZOLE [Concomitant]
     Active Substance: METRONIDAZOLE
  11. ROSUVASTATIN [Concomitant]
     Active Substance: ROSUVASTATIN
  12. SENNOSIDES [Concomitant]
     Active Substance: SENNOSIDES
  13. TETRACYCLINE [Concomitant]
     Active Substance: TETRACYCLINE
  14. TRANDOLAPRIL [Concomitant]
     Active Substance: TRANDOLAPRIL
  15. VITAMIN D [Concomitant]
     Active Substance: VITAMIN D NOS

REACTIONS (1)
  - Drug interaction [Recovered/Resolved]
